FAERS Safety Report 5871270-8 (Version None)
Quarter: 2008Q3

REPORT INFORMATION
  Report Type: 
  Country: None (occurrence: None)
  Receive Date: 20080902
  Receipt Date: 20080820
  Transmission Date: 20090109
  Serious: Yes (Death)
  Sender: FDA-Public Use
  Company Number: 002073

PATIENT
  Age: 28 Year
  Sex: Female

DRUGS (8)
  1. BISULFEX (BUSULFAN) INJECTION [Suspect]
     Indication: STEM CELL TRANSPLANT
     Dosage: 21.6 ML, INTRAVENOUS, 28.8 ML, DAILY DOSE; INTRAVENOUS, 7.2 ML, DAILY DOSE; INTRAVENOUS
     Route: 042
     Dates: start: 20070724, end: 20070724
  2. BISULFEX (BUSULFAN) INJECTION [Suspect]
     Indication: STEM CELL TRANSPLANT
     Dosage: 21.6 ML, INTRAVENOUS, 28.8 ML, DAILY DOSE; INTRAVENOUS, 7.2 ML, DAILY DOSE; INTRAVENOUS
     Route: 042
     Dates: start: 20070725, end: 20070725
  3. BISULFEX (BUSULFAN) INJECTION [Suspect]
     Indication: STEM CELL TRANSPLANT
     Dosage: 21.6 ML, INTRAVENOUS, 28.8 ML, DAILY DOSE; INTRAVENOUS, 7.2 ML, DAILY DOSE; INTRAVENOUS
     Route: 042
     Dates: start: 20070726, end: 20070726
  4. FLUDARABINE PHOSPHATE [Concomitant]
  5. PHENYTOIN [Concomitant]
  6. FILGRASTIM (FILGRASTIM) [Concomitant]
  7. CYCLOSPORINE [Concomitant]
  8. MYCOPHENOLATE MOFETIL [Concomitant]

REACTIONS (15)
  - ACUTE MYELOID LEUKAEMIA [None]
  - ANOREXIA [None]
  - ASPARTATE AMINOTRANSFERASE INCREASED [None]
  - BLOOD BILIRUBIN INCREASED [None]
  - CONDITION AGGRAVATED [None]
  - CORD BLOOD TRANSPLANT THERAPY [None]
  - DIARRHOEA [None]
  - FEBRILE NEUTROPENIA [None]
  - GAMMA-GLUTAMYLTRANSFERASE INCREASED [None]
  - HYPOKALAEMIA [None]
  - HYPONATRAEMIA [None]
  - MALAISE [None]
  - NAUSEA [None]
  - STOMATITIS [None]
  - VOMITING [None]
